FAERS Safety Report 9159305 (Version 1)
Quarter: 2013Q1

REPORT INFORMATION
  Report Type: Spontaneous
  Country: AT (occurrence: AT)
  Receive Date: 20130313
  Receipt Date: 20130313
  Transmission Date: 20140127
  Serious: Yes (Life-Threatening)
  Sender: FDA-Public Use
  Company Number: AT-JNJFOC-20130306753

PATIENT
  Age: 37 Year
  Sex: Male

DRUGS (3)
  1. REOPRO [Suspect]
     Indication: MYOCARDIAL INFARCTION
     Route: 040
     Dates: start: 20130226, end: 20130227
  2. ENOXAPARIN [Concomitant]
     Indication: MYOCARDIAL INFARCTION
     Route: 042
     Dates: start: 20130226
  3. ENOXAPARIN [Concomitant]
     Indication: MYOCARDIAL INFARCTION
     Route: 058
     Dates: start: 20130226

REACTIONS (1)
  - Cardiac tamponade [Recovered/Resolved]
